FAERS Safety Report 13162698 (Version 4)
Quarter: 2017Q1

REPORT INFORMATION
  Report Type: Spontaneous
  Country: GE (occurrence: GE)
  Receive Date: 20170130
  Receipt Date: 20170217
  Transmission Date: 20170428
  Serious: Yes (Death, Other)
  Sender: FDA-Public Use
  Company Number: GE-JNJFOC-20170125010

PATIENT
  Age: 40 Year
  Sex: Male
  Weight: 67 kg

DRUGS (9)
  1. PROTHIONAMIDE [Suspect]
     Active Substance: PROTIONAMIDE
     Indication: TUBERCULOSIS
     Route: 048
     Dates: start: 20161007, end: 20161114
  2. BEDAQUILINE [Suspect]
     Active Substance: BEDAQUILINE
     Indication: TUBERCULOSIS
     Route: 048
     Dates: start: 20161007
  3. CYCLOSERINE. [Suspect]
     Active Substance: CYCLOSERINE
     Indication: TUBERCULOSIS
     Route: 048
     Dates: start: 20161007, end: 20170104
  4. CLOFAZIMINE [Suspect]
     Active Substance: CLOFAZIMINE
     Indication: TUBERCULOSIS
     Route: 048
     Dates: start: 20161208, end: 20170104
  5. CAPREOMYCINE [Suspect]
     Active Substance: CAPREOMYCIN SULFATE
     Indication: TUBERCULOSIS
     Route: 030
     Dates: start: 20161230, end: 20170104
  6. BEDAQUILINE [Suspect]
     Active Substance: BEDAQUILINE
     Indication: TUBERCULOSIS
     Route: 048
     Dates: start: 20161021, end: 20170104
  7. CAPREOMYCINE [Suspect]
     Active Substance: CAPREOMYCIN SULFATE
     Indication: TUBERCULOSIS
     Route: 030
     Dates: start: 20161007, end: 20161206
  8. LINEZOLIDE [Suspect]
     Active Substance: LINEZOLID
     Indication: TUBERCULOSIS
     Route: 048
     Dates: start: 20161007, end: 20170104
  9. CLOFAZIMINE [Suspect]
     Active Substance: CLOFAZIMINE
     Indication: TUBERCULOSIS
     Route: 048
     Dates: start: 20161007, end: 20161206

REACTIONS (4)
  - Treatment noncompliance [Unknown]
  - Acute kidney injury [Not Recovered/Not Resolved]
  - Death [Fatal]
  - Electrocardiogram QT prolonged [Recovered/Resolved]

NARRATIVE: CASE EVENT DATE: 20161013
